FAERS Safety Report 6765202-8 (Version None)
Quarter: 2010Q2

REPORT INFORMATION
  Report Type: 
  Country: None (occurrence: None)
  Receive Date: 20100610
  Receipt Date: 20100610
  Transmission Date: 20101027
  Serious: Yes (Life-Threatening, Hospitalization)
  Sender: FDA-Public Use
  Company Number: None

PATIENT
  Sex: Female
  Weight: 90 kg

DRUGS (1)
  1. PRIMAXIN [Suspect]
     Indication: INFECTION
     Dosage: 500 MG EVERY 6 HOURS IV
     Route: 042
     Dates: start: 20100601, end: 20100607

REACTIONS (1)
  - CONVULSION [None]
